FAERS Safety Report 10393038 (Version 2)
Quarter: 2014Q3

REPORT INFORMATION
  Report Type: Spontaneous
  Country: JP (occurrence: JP)
  Receive Date: 20140819
  Receipt Date: 20140819
  Transmission Date: 20150326
  Serious: Yes (Hospitalization)
  Sender: FDA-Public Use
  Company Number: JP-SA-200813296JP

PATIENT
  Age: 61 Year
  Sex: Male

DRUGS (4)
  1. LOSARTAN [Concomitant]
     Active Substance: LOSARTAN
     Indication: CARDIAC FAILURE CONGESTIVE
  2. TRICHLORMETHIAZIDE [Suspect]
     Active Substance: TRICHLORMETHIAZIDE
     Indication: CARDIAC FAILURE CONGESTIVE
     Route: 065
  3. FUROSEMIDE. [Suspect]
     Active Substance: FUROSEMIDE
     Indication: CARDIAC FAILURE CONGESTIVE
     Dosage: DOSE AS USED: 40 MG
     Route: 048
  4. METILDIGOXIN [Concomitant]
     Active Substance: METILDIGOXIN
     Indication: CARDIAC FAILURE CONGESTIVE

REACTIONS (31)
  - Blood bicarbonate decreased [Recovering/Resolving]
  - Blood lactic acid increased [Recovering/Resolving]
  - Brain natriuretic peptide increased [Recovering/Resolving]
  - Shoshin beriberi [Recovering/Resolving]
  - Metabolic acidosis [Recovering/Resolving]
  - PCO2 decreased [Recovering/Resolving]
  - Cardiac failure [Recovering/Resolving]
  - Cardiomegaly [Recovering/Resolving]
  - Blood urea increased [Recovered/Resolved]
  - Myalgia [Recovering/Resolving]
  - Myopathy [Recovering/Resolving]
  - Anion gap increased [Recovering/Resolving]
  - Blood pressure decreased [Recovering/Resolving]
  - Heart rate increased [Recovering/Resolving]
  - Blood creatine phosphokinase increased [Recovered/Resolved]
  - Troponin I increased [Recovering/Resolving]
  - Dyspnoea [Recovering/Resolving]
  - Cardiac index decreased [Recovering/Resolving]
  - Blood creatinine increased [Recovered/Resolved]
  - Jugular vein distension [Recovering/Resolving]
  - Oedema [Recovering/Resolving]
  - Pulmonary congestion [Recovering/Resolving]
  - Dilatation ventricular [Recovering/Resolving]
  - Hyporeflexia [Recovered/Resolved]
  - Renal failure acute [Recovering/Resolving]
  - Base excess increased [Recovering/Resolving]
  - Wernicke^s encephalopathy [Recovering/Resolving]
  - Nystagmus [Recovered/Resolved]
  - Vitamin B1 deficiency [Unknown]
  - Respiratory rate increased [Recovering/Resolving]
  - Electrocardiogram ST segment depression [Recovering/Resolving]
